FAERS Safety Report 18398365 (Version 1)
Quarter: 2020Q4

REPORT INFORMATION
  Report Type: Spontaneous
  Country: GB (occurrence: GB)
  Receive Date: 20201019
  Receipt Date: 20201019
  Transmission Date: 20210114
  Serious: Yes (Other)
  Sender: FDA-Public Use
  Company Number: GB-SA-2020SA290550

PATIENT

DRUGS (28)
  1. ASCORBIC ACID. [Suspect]
     Active Substance: ASCORBIC ACID
  2. PIMPINELLA ANISUM [Suspect]
     Active Substance: PIMPINELLA ANISUM WHOLE
  3. MAGNESIUM [Suspect]
     Active Substance: MAGNESIUM
  4. AMOXICILLIN. [Suspect]
     Active Substance: AMOXICILLIN
  5. FLAGYL [Suspect]
     Active Substance: METRONIDAZOLE\METRONIDAZOLE HYDROCHLORIDE
  6. MINOCYCLINE [Suspect]
     Active Substance: MINOCYCLINE HYDROCHLORIDE
  7. DESMODIUM [HERBALS] [Suspect]
     Active Substance: HERBALS
  8. LAMOTRIGINE. [Suspect]
     Active Substance: LAMOTRIGINE
  9. CURCUMIN E100 [Suspect]
     Active Substance: CURCUMIN\DIETARY SUPPLEMENT
  10. SILYBUM MARIANUM [Suspect]
     Active Substance: DIETARY SUPPLEMENT\HERBALS\MILK THISTLE
  11. PREGABALIN. [Suspect]
     Active Substance: PREGABALIN
  12. TEA, GREEN [Suspect]
     Active Substance: GREEN TEA LEAF
  13. GLUTATHIONE [Suspect]
     Active Substance: GLUTATHIONE
  14. QUETIAPINE. [Suspect]
     Active Substance: QUETIAPINE
  15. SULFAMETHOXAZOLE [Suspect]
     Active Substance: SULFAMETHOXAZOLE
  16. SODIUM CHLORIDE. [Suspect]
     Active Substance: SODIUM CHLORIDE
  17. PEA PROTEIN [DIETARY SUPPLEMENT\HERBALS] [Suspect]
     Active Substance: DIETARY SUPPLEMENT\HERBALS
  18. CANNABIDIOL [Suspect]
     Active Substance: CANNABIDIOL
  19. SACCHAROMYCES BOULARDII [Suspect]
     Active Substance: SACCHAROMYCES CEREVISIAE
  20. EPSOM SALT [Suspect]
     Active Substance: MAGNESIUM SULFATE
  21. L-ASPARTIC ACID [Suspect]
     Active Substance: ASPARTIC ACID
  22. GAMMA-AMINOBUTYRIC ACID [Suspect]
     Active Substance: .GAMMA.-AMINOBUTYRIC ACID
  23. ORNITHINE [Suspect]
     Active Substance: ORNITHINE
  24. TRIMETHOPRIM. [Suspect]
     Active Substance: TRIMETHOPRIM
  25. RIFAMPICIN [Suspect]
     Active Substance: RIFAMPIN
  26. L-THEANINE [Suspect]
     Active Substance: DIETARY SUPPLEMENT
  27. ZINC. [Suspect]
     Active Substance: ZINC
  28. MILK [Suspect]
     Active Substance: COW MILK

REACTIONS (2)
  - Metal poisoning [Unknown]
  - Seizure [Unknown]

NARRATIVE: CASE EVENT DATE: 202006
